FAERS Safety Report 7066525-8 (Version None)
Quarter: 2010Q4

REPORT INFORMATION
  Report Type: 
  Country: None (occurrence: None)
  Receive Date: 20101027
  Receipt Date: 20100316
  Transmission Date: 20110411
  Serious: No
  Sender: FDA-Public Use
  Company Number: US-WYE-H14219810

PATIENT
  Sex: Female

DRUGS (2)
  1. PREMPRO [Suspect]
     Indication: HOT FLUSH
     Dosage: ONE TABLET DAILY, DOSE NOT SPECIFIED
     Route: 048
     Dates: start: 19960101, end: 20060101
  2. PREMPRO [Suspect]
     Indication: HORMONE REPLACEMENT THERAPY
     Dosage: ONE TABLET DAILY ON MONDAY, WEDNESDAY, FRIDAY AND SATURDAY DOSE NOT SPECIFIED
     Route: 048
     Dates: start: 20060101

REACTIONS (2)
  - FOREIGN BODY [None]
  - PRODUCT COATING ISSUE [None]
